FAERS Safety Report 26152013 (Version 2)
Quarter: 2025Q4

REPORT INFORMATION
  Report Type: Spontaneous
  Country: US (occurrence: US)
  Receive Date: 20251214
  Receipt Date: 20251226
  Transmission Date: 20260118
  Serious: No
  Sender: SANOFI AVENTIS
  Company Number: US-SA-2025SA370559

PATIENT
  Age: 19 Year
  Sex: Female

DRUGS (2)
  1. DUPIXENT [Suspect]
     Active Substance: DUPILUMAB
     Indication: Eczema
     Dosage: 600 MG, 1X
     Route: 058
     Dates: start: 202509, end: 202509
  2. DUPIXENT [Suspect]
     Active Substance: DUPILUMAB
     Indication: Eczema nummular
     Dosage: 300 MG, QOW
     Route: 058
     Dates: start: 202510

REACTIONS (14)
  - Pyrexia [Unknown]
  - Hyperhidrosis [Unknown]
  - Nail disorder [Unknown]
  - Eczema eyelids [Recovered/Resolved]
  - Hot flush [Unknown]
  - Abdominal pain upper [Unknown]
  - Condition aggravated [Unknown]
  - Muscle spasms [Unknown]
  - Rash erythematous [Unknown]
  - Burning sensation [Unknown]
  - Pruritus [Unknown]
  - Eczema nummular [Unknown]
  - Condition aggravated [Unknown]
  - Arthralgia [Unknown]

NARRATIVE: CASE EVENT DATE: 20250101
